FAERS Safety Report 5485913-4 (Version None)
Quarter: 2007Q4

REPORT INFORMATION
  Report Type: 
  Country: None (occurrence: None)
  Receive Date: 20071015
  Receipt Date: 20071005
  Transmission Date: 20080405
  Serious: Yes (Hospitalization)
  Sender: FDA-Public Use
  Company Number: NL-SHR-NL-2007-033584

PATIENT
  Age: 85 Year
  Sex: Female

DRUGS (1)
  1. ULTRAVIST 300 [Suspect]
     Dosage: UNK, 1 DOSE
     Route: 042
     Dates: start: 20070828, end: 20070828

REACTIONS (9)
  - COLD SWEAT [None]
  - CONFUSIONAL STATE [None]
  - DEPRESSED LEVEL OF CONSCIOUSNESS [None]
  - EYE DISORDER [None]
  - FOAMING AT MOUTH [None]
  - HYPERSENSITIVITY [None]
  - MALAISE [None]
  - PALLOR [None]
  - VOMITING [None]
